FAERS Safety Report 4414750-4 (Version None)
Quarter: 2004Q3

REPORT INFORMATION
  Report Type: 
  Country: None (occurrence: None)
  Receive Date: 20040804
  Receipt Date: 20030818
  Transmission Date: 20050211
  Serious: No
  Sender: FDA-Public Use
  Company Number: US-BRISTOL-MYERS SQUIBB COMPANY-12358867

PATIENT
  Age: 81 Year
  Sex: Female
  Weight: 61 kg

DRUGS (11)
  1. GLUCOVANCE [Suspect]
     Indication: DIABETES MELLITUS
     Route: 048
  2. LIPITOR [Concomitant]
  3. PLAVIX [Concomitant]
  4. ALTACE [Concomitant]
  5. METFORMIN HCL [Concomitant]
  6. NEURONTIN [Concomitant]
  7. MULTIVITAMIN [Concomitant]
  8. VITAMIN E [Concomitant]
  9. VITAMIN C [Concomitant]
  10. ASPIRIN [Concomitant]
  11. GLIPIZIDE [Concomitant]

REACTIONS (1)
  - BLOOD GLUCOSE INCREASED [None]
